FAERS Safety Report 5956203-8 (Version None)
Quarter: 2008Q4

REPORT INFORMATION
  Report Type: 
  Country: None (occurrence: None)
  Receive Date: 20081112
  Receipt Date: 20081104
  Transmission Date: 20090506
  Serious: Yes (Hospitalization)
  Sender: FDA-Public Use
  Company Number: MEDI-0007445

PATIENT
  Age: 10 Month
  Sex: Female

DRUGS (2)
  1. SYNAGIS [Suspect]
     Dates: start: 20080901, end: 20080901
  2. SYNAGIS [Suspect]
     Dates: start: 20081016

REACTIONS (1)
  - BRONCHITIS [None]
